FAERS Safety Report 8099922-2 (Version None)
Quarter: 2012Q1

REPORT INFORMATION
  Report Type: 
  Country: None (occurrence: None)
  Receive Date: 20120129
  Receipt Date: 20111118
  Transmission Date: 20120608
  Serious: No
  Sender: FDA-Public Use
  Company Number: US-ABBOTT-11P-163-0875755-00

PATIENT
  Age: 37 Year
  Sex: Female

DRUGS (2)
  1. IRON [Concomitant]
     Indication: PRODUCT USED FOR UNKNOWN INDICATION
     Dosage: PILLS
  2. HUMIRA [Suspect]
     Indication: CROHN'S DISEASE
     Dates: start: 20110301

REACTIONS (4)
  - INJECTION SITE HAEMORRHAGE [None]
  - ALOPECIA [None]
  - INJECTION SITE HAEMATOMA [None]
  - PSORIASIS [None]
